FAERS Safety Report 8155508-2 (Version None)
Quarter: 2012Q1

REPORT INFORMATION
  Report Type: 
  Country: None (occurrence: None)
  Receive Date: 20120222
  Receipt Date: 20120208
  Transmission Date: 20120608
  Serious: Yes (Hospitalization)
  Sender: FDA-Public Use
  Company Number: ES-CELGENEUS-144-21660-12020261

PATIENT
  Sex: Male
  Weight: 60.6 kg

DRUGS (6)
  1. ATORVASTATIN [Concomitant]
     Route: 048
  2. LOSARTAN POTASSIUM [Concomitant]
     Route: 048
  3. GEMCITABINE [Suspect]
     Route: 065
     Dates: end: 20120127
  4. ATENOLOL [Concomitant]
     Route: 048
  5. ABRAXANE [Suspect]
     Route: 041
     Dates: start: 20111216, end: 20120127
  6. MOXON [Concomitant]
     Route: 048

REACTIONS (2)
  - SYNCOPE [None]
  - SUPRAVENTRICULAR TACHYCARDIA [None]
